FAERS Safety Report 5809274-3 (Version None)
Quarter: 2008Q3

REPORT INFORMATION
  Report Type: 
  Country: None (occurrence: None)
  Receive Date: 20080714
  Receipt Date: 20080620
  Transmission Date: 20090109
  Serious: No
  Sender: FDA-Public Use
  Company Number: US-BOEHRINGER INGELHEIM GMBH, GERMANY-2008-BP-09604BP

PATIENT
  Age: 66 Year
  Sex: Male

DRUGS (4)
  1. AGGRENOX [Suspect]
     Indication: CEREBROVASCULAR ACCIDENT
     Route: 048
     Dates: start: 20080119, end: 20080119
  2. LIPITOR [Concomitant]
     Indication: HYPERCHOLESTEROLAEMIA
  3. ACIPHEX [Concomitant]
     Indication: GASTROOESOPHAGEAL REFLUX DISEASE
  4. ASPIRIN [Concomitant]
     Dates: end: 20080116

REACTIONS (1)
  - HEADACHE [None]
